FAERS Safety Report 4908883-3 (Version None)
Quarter: 2006Q1

REPORT INFORMATION
  Report Type: 
  Country: None (occurrence: None)
  Receive Date: 20060210
  Receipt Date: 20060206
  Transmission Date: 20060701
  Serious: Yes (Other)
  Sender: FDA-Public Use
  Company Number: PHNU2006DE00799

PATIENT
  Age: 69 Year
  Sex: Female

DRUGS (2)
  1. DIOVAN [Suspect]
     Indication: HYPERTENSION
     Dosage: 1 DF, QD
     Dates: start: 20051101
  2. HYDROCHLOROTHIAZIDE [Concomitant]

REACTIONS (1)
  - INTRAOCULAR PRESSURE INCREASED [None]
